FAERS Safety Report 12132991 (Version 1)
Quarter: 2016Q1

REPORT INFORMATION
  Report Type: Spontaneous
  Country: US (occurrence: US)
  Receive Date: 20160301
  Receipt Date: 20160301
  Transmission Date: 20160526
  Serious: Yes (Death, Hospitalization)
  Sender: FDA-Public Use
  Company Number: US-JNJFOC-20160224912

PATIENT

DRUGS (1)
  1. XARELTO [Suspect]
     Active Substance: RIVAROXABAN
     Indication: THROMBOSIS
     Route: 048
     Dates: start: 201202

REACTIONS (4)
  - Ulcer haemorrhage [Unknown]
  - Internal haemorrhage [Unknown]
  - Haematemesis [Unknown]
  - Death [Fatal]

NARRATIVE: CASE EVENT DATE: 20130821
